FAERS Safety Report 11132568 (Version 1)
Quarter: 2015Q2

REPORT INFORMATION
  Report Type: Spontaneous
  Country: US (occurrence: US)
  Receive Date: 20150522
  Receipt Date: 20150522
  Transmission Date: 20150821
  Serious: Yes (Other)
  Sender: FDA-Public Use
  Company Number: US-BAXTER-2015BAX026810

PATIENT
  Age: 62 Year
  Sex: Female

DRUGS (2)
  1. GAMMAGARD LIQUID [Suspect]
     Active Substance: HUMAN IMMUNOGLOBULIN G
     Indication: IMMUNODEFICIENCY COMMON VARIABLE
     Dosage: DAILY FOR 2 DAYS EVERY 4 WEEKS
     Route: 042
     Dates: start: 201103
  2. GAMMAGARD LIQUID [Suspect]
     Active Substance: HUMAN IMMUNOGLOBULIN G
     Indication: AUTOIMMUNE DISORDER
     Route: 042

REACTIONS (2)
  - Hepatitis B surface antibody positive [Unknown]
  - Adverse event [Unknown]

NARRATIVE: CASE EVENT DATE: 20150508
